FAERS Safety Report 25543414 (Version 2)
Quarter: 2025Q3

REPORT INFORMATION
  Report Type: Spontaneous
  Country: CA (occurrence: CA)
  Receive Date: 20250711
  Receipt Date: 20250912
  Transmission Date: 20251020
  Serious: Yes (Other)
  Sender: CELLTRION
  Company Number: CA-CELLTRION INC.-2023CA021147

PATIENT

DRUGS (33)
  1. TRUXIMA [Suspect]
     Active Substance: RITUXIMAB-ABBS
     Indication: Rheumatoid arthritis
     Route: 042
     Dates: start: 20231026
  2. TRUXIMA [Suspect]
     Active Substance: RITUXIMAB-ABBS
     Route: 042
     Dates: start: 20231026
  3. TRUXIMA [Suspect]
     Active Substance: RITUXIMAB-ABBS
     Route: 042
     Dates: start: 20231026
  4. TRUXIMA [Suspect]
     Active Substance: RITUXIMAB-ABBS
     Route: 042
     Dates: start: 20231026
  5. TRUXIMA [Suspect]
     Active Substance: RITUXIMAB-ABBS
     Route: 042
     Dates: start: 20231026
  6. TRUXIMA [Suspect]
     Active Substance: RITUXIMAB-ABBS
     Route: 042
     Dates: start: 20231026
  7. PANTOPRAZOLE [Concomitant]
     Active Substance: PANTOPRAZOLE
     Indication: Gastrooesophageal reflux disease
  8. GLICLAZIDE [Concomitant]
     Active Substance: GLICLAZIDE
     Indication: Diabetes mellitus
  9. METHOTREXATE [Concomitant]
     Active Substance: METHOTREXATE
     Indication: Rheumatoid arthritis
     Dosage: 2.5 MG (8 TABS ONCE WEEKLY ON FRIDAYS)
  10. CRESTOR [Concomitant]
     Active Substance: ROSUVASTATIN CALCIUM
     Indication: Blood cholesterol
  11. RAMIPRIL [Concomitant]
     Active Substance: RAMIPRIL
     Indication: Blood pressure measurement
  12. PREDNISONE [Concomitant]
     Active Substance: PREDNISONE
  13. FOLIC ACID [Concomitant]
     Active Substance: FOLIC ACID
  14. CARBAMAZEPINE [Concomitant]
     Active Substance: CARBAMAZEPINE
     Indication: Seizure prophylaxis
  15. CARBAMAZEPINE [Concomitant]
     Active Substance: CARBAMAZEPINE
  16. JANUMET XR [Concomitant]
     Active Substance: METFORMIN HYDROCHLORIDE\SITAGLIPTIN PHOSPHATE
     Indication: Diabetes mellitus
  17. TAMSULOSIN [Concomitant]
     Active Substance: TAMSULOSIN
  18. BISOPROLOL [Concomitant]
     Active Substance: BISOPROLOL
     Indication: Blood pressure measurement
  19. VITAMIN D NOS [Concomitant]
     Active Substance: CHOLECALCIFEROL\ERGOCALCIFEROL
  20. FISH OIL [Concomitant]
     Active Substance: FISH OIL
  21. VITAMIN B12 [Concomitant]
     Active Substance: CYANOCOBALAMIN
  22. SENOKOT [Concomitant]
     Active Substance: SENNOSIDES
  23. PROLIA [Concomitant]
     Active Substance: DENOSUMAB
     Indication: Osteoporosis
  24. BETAHISTINE [Concomitant]
     Active Substance: BETAHISTINE
     Indication: Vertigo
  25. VENTOLIN [Concomitant]
     Active Substance: ALBUTEROL SULFATE
  26. SYMBICORT [Concomitant]
     Active Substance: BUDESONIDE\FORMOTEROL FUMARATE DIHYDRATE
  27. ACETAMINOPHEN [Concomitant]
     Active Substance: ACETAMINOPHEN
     Indication: Premedication
     Route: 048
  28. DIPHENHYDRAMINE [Concomitant]
     Active Substance: DIPHENHYDRAMINE
     Indication: Premedication
     Route: 048
  29. METHYLPREDNISOLONE [Concomitant]
     Active Substance: METHYLPREDNISOLONE
     Indication: Premedication
     Route: 042
  30. PRAMIPEXOLE [Concomitant]
     Active Substance: PRAMIPEXOLE
  31. TRAMADOL [Concomitant]
     Active Substance: TRAMADOL
  32. FLUTICASONE FUROATE [Concomitant]
     Active Substance: FLUTICASONE FUROATE
  33. DICLOFENAC [Concomitant]
     Active Substance: DICLOFENAC

REACTIONS (5)
  - Eye operation [Unknown]
  - Poor venous access [Unknown]
  - Hypertension [Not Recovered/Not Resolved]
  - Refusal of treatment by patient [Unknown]
  - Off label use [Unknown]

NARRATIVE: CASE EVENT DATE: 20231026
